FAERS Safety Report 4876315-X (Version None)
Quarter: 2006Q1

REPORT INFORMATION
  Report Type: 
  Country: None (occurrence: None)
  Receive Date: 20060110
  Receipt Date: 20050804
  Transmission Date: 20060701
  Serious: Yes (Life-Threatening, Hospitalization)
  Sender: FDA-Public Use
  Company Number: JP-BOEHRINGER INGELHEIM PHARMACEUTICALS, INC.-2005-BP-13403NB

PATIENT
  Sex: Female
  Weight: 53 kg

DRUGS (6)
  1. MOBIC [Suspect]
     Indication: OSTEOARTHRITIS
     Route: 048
     Dates: start: 20050601, end: 20050712
  2. NORVASC [Concomitant]
     Indication: HYPERTENSION
     Route: 048
     Dates: start: 19960625
  3. MEVALOTIN [Concomitant]
     Indication: HYPERLIPIDAEMIA
     Route: 048
     Dates: start: 20000608
  4. ASPIRIN [Concomitant]
     Indication: LACUNAR INFARCTION
     Route: 048
     Dates: start: 20040409
  5. PURSENNID (SENNOSIDE) [Concomitant]
     Indication: CONSTIPATION
     Route: 048
     Dates: start: 19991214
  6. MASHI-NIN-GAN (HERBAL MEDICINE) [Concomitant]
     Indication: LACUNAR INFARCTION
     Route: 048
     Dates: start: 19991214

REACTIONS (1)
  - HAEMOLYTIC ANAEMIA [None]
